FAERS Safety Report 17622854 (Version 2)
Quarter: 2020Q3

REPORT INFORMATION
  Report Type: Spontaneous
  Country: US (occurrence: US)
  Receive Date: 20200403
  Receipt Date: 20200701
  Transmission Date: 20201102
  Serious: No
  Sender: FDA-Public Use
  Company Number: US-PFIZER INC-2020138375

PATIENT
  Age: 57 Year
  Sex: Female
  Weight: 102.04 kg

DRUGS (3)
  1. ALIVE! WOMEN^S 50 PLUS [Concomitant]
     Dosage: UNK (240?120)
  2. IBRANCE [Suspect]
     Active Substance: PALBOCICLIB
     Indication: BREAST CANCER FEMALE
     Dosage: 125 MG, CYCLIC DAILY (1 DAILY FOR 21 DAYS)
     Route: 048
     Dates: start: 20200220, end: 2020
  3. HYDROCHLOROTHIAZIDE/METOPROLOL [Concomitant]
     Active Substance: HYDROCHLOROTHIAZIDE\METOPROLOL
     Dosage: 50 MG, UNK (50 MG?2)

REACTIONS (1)
  - White blood cell count decreased [Unknown]

NARRATIVE: CASE EVENT DATE: 2020
